FAERS Safety Report 11325821 (Version 1)
Quarter: 2015Q3

REPORT INFORMATION
  Report Type: Spontaneous
  Country: FR (occurrence: FR)
  Receive Date: 20150731
  Receipt Date: 20150731
  Transmission Date: 20151125
  Serious: Yes (Other)
  Sender: FDA-Public Use
  Company Number: FR-PFIZER INC-2015244205

PATIENT
  Age: 69 Year
  Sex: Female

DRUGS (15)
  1. LEVOTHYROX [Concomitant]
     Active Substance: LEVOTHYROXINE
  2. LYRICA [Concomitant]
     Active Substance: PREGABALIN
  3. PANTOPRAZOLE [Concomitant]
     Active Substance: PANTOPRAZOLE SODIUM
  4. AMLOR [Concomitant]
     Active Substance: AMLODIPINE BESYLATE
  5. FORLAX [Concomitant]
     Active Substance: POLYETHYLENE GLYCOL 4000
  6. PERFALGAN [Concomitant]
     Active Substance: ACETAMINOPHEN
  7. STEROGYL /00107901/ [Concomitant]
  8. DUROGESIC [Concomitant]
     Active Substance: FENTANYL
  9. SOLU-MEDROL [Concomitant]
     Active Substance: METHYLPREDNISOLONE SODIUM SUCCINATE
  10. XALKORI [Suspect]
     Active Substance: CRIZOTINIB
     Indication: BRONCHIAL CARCINOMA
     Dosage: 250 MG, 2X/DAY
     Route: 048
     Dates: start: 20150525, end: 20150610
  11. DIFFU K [Concomitant]
     Active Substance: POTASSIUM CHLORIDE
  12. XGEVA [Concomitant]
     Active Substance: DENOSUMAB
  13. SPASFON /00765801/ [Concomitant]
     Active Substance: PHLOROGLUCINOL\1,3,5-TRIMETHOXYBENZENE
  14. PRIMPERAN [Concomitant]
     Active Substance: METOCLOPRAMIDE HYDROCHLORIDE
  15. LASILIX /00032601/ [Concomitant]
     Active Substance: FUROSEMIDE

REACTIONS (13)
  - Oedema peripheral [Not Recovered/Not Resolved]
  - Paraesthesia [Not Recovered/Not Resolved]
  - Amnesia [Not Recovered/Not Resolved]
  - Diplopia [Not Recovered/Not Resolved]
  - Skin fissures [Unknown]
  - Asthenia [Not Recovered/Not Resolved]
  - Vision blurred [Not Recovered/Not Resolved]
  - Fall [Recovered/Resolved]
  - Disturbance in attention [Not Recovered/Not Resolved]
  - Photopsia [Not Recovered/Not Resolved]
  - Dry skin [Not Recovered/Not Resolved]
  - Mood altered [Not Recovered/Not Resolved]
  - Constipation [Not Recovered/Not Resolved]

NARRATIVE: CASE EVENT DATE: 20150530
